FAERS Safety Report 20468474 (Version 1)
Quarter: 2022Q1

REPORT INFORMATION
  Report Type: Spontaneous
  Country: US (occurrence: None)
  Receive Date: 20220211
  Receipt Date: 20220211
  Transmission Date: 20220423
  Serious: Yes (Disabling)
  Sender: FDA-Public Use
  Company Number: None

PATIENT
  Age: 28 Year
  Sex: Female
  Weight: 58.5 kg

DRUGS (1)
  1. METHYLPHENIDATE HYDROCHLORIDE [Suspect]
     Active Substance: METHYLPHENIDATE HYDROCHLORIDE
     Indication: Attention deficit hyperactivity disorder
     Dosage: OTHER QUANTITY : 1 TABLET(S);?
     Route: 048
     Dates: start: 20211221, end: 20220210

REACTIONS (8)
  - Product substitution issue [None]
  - Fatigue [None]
  - Disturbance in attention [None]
  - Apathy [None]
  - Loss of personal independence in daily activities [None]
  - Anxiety [None]
  - Affect lability [None]
  - Drug ineffective [None]

NARRATIVE: CASE EVENT DATE: 20211221
